FAERS Safety Report 4763016-1 (Version None)
Quarter: 2005Q3

REPORT INFORMATION
  Report Type: 
  Country: None (occurrence: None)
  Receive Date: 20050907
  Receipt Date: 20050901
  Transmission Date: 20060218
  Serious: Yes (Life-Threatening)
  Sender: FDA-Public Use
  Company Number: GB-MERCK-0509GBR00014

PATIENT
  Age: 70 Year
  Sex: Male
  Weight: 92 kg

DRUGS (12)
  1. PROSCAR [Suspect]
     Indication: BENIGN PROSTATIC HYPERPLASIA
     Route: 048
     Dates: start: 20050811, end: 20050811
  2. ASPIRIN [Concomitant]
     Route: 065
  3. ZOCOR [Concomitant]
     Route: 065
     Dates: start: 19960517
  4. PSYLLIUM HUSK [Concomitant]
     Route: 065
  5. NITROGLYCERIN [Concomitant]
     Route: 065
  6. ISOSORBIDE MONONITRATE [Concomitant]
     Route: 065
     Dates: start: 20010314
  7. NIFEDIPINE [Concomitant]
     Route: 065
  8. CANDESARTAN [Concomitant]
     Route: 065
     Dates: start: 20020109
  9. ATENOLOL [Concomitant]
     Route: 065
  10. OMEPRAZOLE [Concomitant]
     Route: 065
  11. BENDROFLUMETHIAZIDE [Concomitant]
     Route: 065
  12. PNEUMOCOCCAL 23V POLYSACCHARIDE VACCINE [Concomitant]
     Route: 065
     Dates: start: 20050608

REACTIONS (1)
  - ANGINA PECTORIS [None]
